FAERS Safety Report 9248178 (Version 2)
Quarter: 2013Q2

REPORT INFORMATION
  Report Type: Spontaneous
  Country: US (occurrence: US)
  Receive Date: 20130423
  Receipt Date: 20130521
  Transmission Date: 20140414
  Serious: No
  Sender: FDA-Public Use
  Company Number: US-PFIZER INC-2013125299

PATIENT
  Sex: 0

DRUGS (2)
  1. PROTONIX [Suspect]
     Indication: ULCER
     Dosage: 8MG/HR
     Route: 042
     Dates: end: 20130419
  2. PROTONIX [Suspect]
     Dosage: 8 MG/HR, UNK
     Route: 042

REACTIONS (1)
  - Injection site extravasation [Unknown]
